FAERS Safety Report 15866178 (Version 6)
Quarter: 2024Q1

REPORT INFORMATION
  Report Type: Spontaneous
  Country: FR (occurrence: FR)
  Receive Date: 20190125
  Receipt Date: 20240328
  Transmission Date: 20240410
  Serious: Yes (Other)
  Sender: FDA-Public Use
  Company Number: FR-CELLTRION INC.-2018FR018919

PATIENT

DRUGS (38)
  1. RITUXIMAB [Suspect]
     Active Substance: RITUXIMAB
     Indication: Chronic lymphocytic leukaemia
     Dosage: DOSAGE FORM: UNSPECIFIED
     Route: 048
     Dates: start: 2013
  2. RITUXIMAB [Suspect]
     Active Substance: RITUXIMAB
     Dosage: UNK
     Route: 048
     Dates: start: 2013
  3. RITUXIMAB [Suspect]
     Active Substance: RITUXIMAB
     Dosage: (DOSAGE FORM: UNSPECIFIED)
     Route: 048
     Dates: start: 2014
  4. RITUXIMAB [Suspect]
     Active Substance: RITUXIMAB
     Dosage: (DOSAGE FORM: UNSPECIFIED)
     Route: 048
     Dates: start: 2014
  5. RITUXIMAB [Suspect]
     Active Substance: RITUXIMAB
     Dosage: UNK
     Route: 048
     Dates: start: 201608
  6. RITUXIMAB [Suspect]
     Active Substance: RITUXIMAB
     Dosage: UNK
     Route: 048
     Dates: start: 201608
  7. NIVOLUMAB [Suspect]
     Active Substance: NIVOLUMAB
     Indication: Chronic lymphocytic leukaemia
     Dosage: DOSAGE FORM: UNSPECIFIED
     Route: 065
     Dates: start: 201707
  8. NIVOLUMAB [Suspect]
     Active Substance: NIVOLUMAB
     Dosage: DOSAGE FORM: UNSPECIFIED
     Route: 065
     Dates: start: 201707
  9. NIVOLUMAB [Suspect]
     Active Substance: NIVOLUMAB
     Dosage: DOSAGE FORM: UNSPECIFIED
     Route: 065
     Dates: start: 201707
  10. NIVOLUMAB [Suspect]
     Active Substance: NIVOLUMAB
     Dosage: DOSAGE FORM: UNSPECIFIED
     Route: 065
     Dates: start: 201707
  11. NIVOLUMAB [Suspect]
     Active Substance: NIVOLUMAB
     Dosage: DOSAGE FORM: UNSPECIFIED
     Route: 065
     Dates: start: 201707
  12. NIVOLUMAB [Suspect]
     Active Substance: NIVOLUMAB
     Dosage: DOAGE FORM: INFUSION
     Route: 065
     Dates: start: 201707
  13. METHOTREXATE [Suspect]
     Active Substance: METHOTREXATE
     Indication: Chronic lymphocytic leukaemia
     Dosage: DOSAGE FORM: UNSPECIFIED
     Route: 065
  14. METHOTREXATE [Suspect]
     Active Substance: METHOTREXATE
     Dosage: DOSAGE FORM: UNSPECIFIED
     Route: 065
  15. METHOTREXATE [Suspect]
     Active Substance: METHOTREXATE
     Dosage: DOSAGE FORM: UNSPECIFIED
     Route: 065
  16. METHOTREXATE [Suspect]
     Active Substance: METHOTREXATE
     Dosage: DOSAGE FORM: UNSPECIFIED
     Route: 065
  17. METHOTREXATE [Suspect]
     Active Substance: METHOTREXATE
     Dosage: UNK
     Route: 065
  18. ZYDELIG [Suspect]
     Active Substance: IDELALISIB
     Indication: Chronic lymphocytic leukaemia
     Dosage: UNK
     Route: 065
  19. BENDAMUSTINE HYDROCHLORIDE [Suspect]
     Active Substance: BENDAMUSTINE HYDROCHLORIDE
     Indication: Chronic lymphocytic leukaemia
     Dosage: UNK UNK, CYCLIC
     Route: 042
     Dates: start: 201608
  20. IMBRUVICA [Suspect]
     Active Substance: IBRUTINIB
     Indication: Chronic lymphocytic leukaemia
     Dosage: UNK
     Route: 048
     Dates: start: 201403, end: 2014
  21. IMBRUVICA [Suspect]
     Active Substance: IBRUTINIB
     Dosage: UNK
     Route: 048
     Dates: start: 201403, end: 2014
  22. IMBRUVICA [Suspect]
     Active Substance: IBRUTINIB
     Dosage: UNK
     Route: 048
     Dates: start: 201403, end: 2014
  23. IMBRUVICA [Suspect]
     Active Substance: IBRUTINIB
     Dosage: UNK
     Route: 048
     Dates: start: 201403, end: 2014
  24. IMBRUVICA [Suspect]
     Active Substance: IBRUTINIB
     Dosage: ADDITIONAL INFO: START PERIOD: 1095 DAYS
     Route: 048
     Dates: start: 201411
  25. IMBRUVICA [Suspect]
     Active Substance: IBRUTINIB
     Dosage: ADDITIONAL INFO: START PERIOD: 1095 DAYS
     Route: 048
     Dates: start: 201411
  26. IMBRUVICA [Suspect]
     Active Substance: IBRUTINIB
     Dosage: ADDITIONAL INFO: START PERIOD: 1095 DAYS
     Route: 048
     Dates: start: 201411
  27. IMBRUVICA [Suspect]
     Active Substance: IBRUTINIB
     Dosage: ADDITIONAL INFO: START PERIOD: 1095 DAYS
     Route: 048
     Dates: start: 201411
  28. IMBRUVICA [Suspect]
     Active Substance: IBRUTINIB
     Dosage: START PERIOD: 1095 DAYS
     Route: 048
     Dates: start: 201711, end: 201711
  29. IMBRUVICA [Suspect]
     Active Substance: IBRUTINIB
     Dosage: START PERIOD: 1095 DAYS
     Route: 048
     Dates: start: 201711, end: 201711
  30. IMBRUVICA [Suspect]
     Active Substance: IBRUTINIB
     Dosage: START PERIOD: 1095 DAYS
     Route: 048
     Dates: start: 201711, end: 201711
  31. IMBRUVICA [Suspect]
     Active Substance: IBRUTINIB
     Dosage: START PERIOD: 1095 DAYS
     Route: 048
     Dates: start: 201711, end: 201711
  32. VENETOCLAX [Suspect]
     Active Substance: VENETOCLAX
     Indication: Chronic lymphocytic leukaemia
     Dosage: UNK
     Route: 048
     Dates: start: 201608
  33. VENETOCLAX [Suspect]
     Active Substance: VENETOCLAX
     Dosage: UNK
     Route: 048
  34. IBRUTINIB [Suspect]
     Active Substance: IBRUTINIB
     Indication: Chronic lymphocytic leukaemia
     Dosage: UNK
     Route: 048
     Dates: start: 201403
  35. IBRUTINIB [Suspect]
     Active Substance: IBRUTINIB
     Dosage: UNK
     Route: 048
     Dates: start: 201711, end: 201711
  36. IDELALISIB [Suspect]
     Active Substance: IDELALISIB
     Indication: Chronic lymphocytic leukaemia
     Dosage: UNK
     Route: 065
  37. IDELALISIB [Suspect]
     Active Substance: IDELALISIB
     Dosage: UNK
     Route: 065
  38. IDELALISIB [Suspect]
     Active Substance: IDELALISIB
     Dosage: UNK
     Route: 065

REACTIONS (4)
  - Non-small cell lung cancer [Unknown]
  - Chronic lymphocytic leukaemia [Unknown]
  - Nonspecific reaction [Unknown]
  - Intentional product use issue [Unknown]

NARRATIVE: CASE EVENT DATE: 20170301
